FAERS Safety Report 14559745 (Version 1)
Quarter: 2018Q1

REPORT INFORMATION
  Report Type: Spontaneous
  Country: US (occurrence: US)
  Receive Date: 20180220
  Receipt Date: 20180220
  Transmission Date: 20180509
  Serious: Yes (Disabling)
  Sender: FDA-Public Use
  Company Number: None

PATIENT
  Age: 29 Year
  Sex: Female
  Weight: 58.05 kg

DRUGS (7)
  1. ADDERALL [Concomitant]
     Active Substance: AMPHETAMINE ASPARTATE\AMPHETAMINE SULFATE\DEXTROAMPHETAMINE SACCHARATE\DEXTROAMPHETAMINE SULFATE
  2. KEPPRA [Concomitant]
     Active Substance: LEVETIRACETAM
  3. TURMERIC [Concomitant]
     Active Substance: HERBALS\TURMERIC
  4. CRANBERRY. [Concomitant]
     Active Substance: CRANBERRY
  5. TYSABRI [Suspect]
     Active Substance: NATALIZUMAB
     Indication: MULTIPLE SCLEROSIS
     Dosage: QUANTITY:1 IV BAG;OTHER FREQUENCY:EVERY 28 DAYS;?
     Route: 042
     Dates: start: 20120201, end: 20180220
  6. VITAMIN D [Concomitant]
     Active Substance: CHOLECALCIFEROL
  7. VITAMIN B12 [Concomitant]
     Active Substance: CYANOCOBALAMIN

REACTIONS (14)
  - Dizziness [None]
  - Migraine [None]
  - Impaired work ability [None]
  - Tension headache [None]
  - Vaginal haemorrhage [None]
  - Bacterial vaginosis [None]
  - Pyrexia [None]
  - Diarrhoea [None]
  - Abdominal pain [None]
  - Chills [None]
  - Pain in extremity [None]
  - Muscle spasms [None]
  - Urinary tract infection [None]
  - Fatigue [None]

NARRATIVE: CASE EVENT DATE: 20180219
